FAERS Safety Report 9903258 (Version 1)
Quarter: 2014Q1

REPORT INFORMATION
  Report Type: Spontaneous
  Country: US (occurrence: US)
  Receive Date: 20140217
  Receipt Date: 20140217
  Transmission Date: 20141002
  Serious: No
  Sender: FDA-Public Use
  Company Number: US-ASTRAZENECA-2013SE71715

PATIENT
  Age: 59 Year
  Sex: Male
  Weight: 67.1 kg

DRUGS (7)
  1. ATENOLOL [Suspect]
     Indication: HEART RATE INCREASED
     Route: 048
     Dates: start: 2012
  2. ATENOLOL [Suspect]
     Indication: HYPERTENSION
     Route: 048
     Dates: start: 2012
  3. NEXIUM [Suspect]
     Indication: GASTROOESOPHAGEAL REFLUX DISEASE
     Route: 048
     Dates: start: 2010, end: 201308
  4. AMLODIPIN [Concomitant]
     Indication: HYPERTENSION
     Route: 048
     Dates: start: 2012
  5. MAALOX [Concomitant]
     Indication: GASTROOESOPHAGEAL REFLUX DISEASE
     Dosage: UNKNOWN PRN
     Route: 048
  6. PEPCID [Concomitant]
     Indication: GASTROOESOPHAGEAL REFLUX DISEASE
     Dosage: 1 PRN
     Route: 048
  7. DOXAZOSI [Concomitant]
     Indication: PROSTATIC DISORDER
     Route: 048

REACTIONS (6)
  - Abdominal pain upper [Unknown]
  - Sleep disorder due to a general medical condition [Unknown]
  - Gastrooesophageal reflux disease [Unknown]
  - Hypertension [Unknown]
  - Abdominal tenderness [Unknown]
  - Intentional drug misuse [Unknown]
